FAERS Safety Report 12824021 (Version 1)
Quarter: 2016Q4

REPORT INFORMATION
  Report Type: Spontaneous
  Country: US (occurrence: US)
  Receive Date: 20161007
  Receipt Date: 20161007
  Transmission Date: 20170207
  Serious: No
  Sender: FDA-Public Use
  Company Number: None

PATIENT
  Age: 32 Year
  Sex: Female
  Weight: 76.5 kg

DRUGS (8)
  1. VALSARTAN HCTZ [Concomitant]
     Active Substance: HYDROCHLOROTHIAZIDE\VALSARTAN
  2. IBUPROFEN. [Concomitant]
     Active Substance: IBUPROFEN
  3. ATIVAN [Concomitant]
     Active Substance: LORAZEPAM
  4. DAILY WOMEN^S VITAMIN [Concomitant]
  5. MIRENA [Suspect]
     Active Substance: LEVONORGESTREL
     Indication: CONTRACEPTION
     Dosage: ?          QUANTITY:1 MEDICAL DEVICE;?
     Route: 067
     Dates: start: 20160201, end: 20161006
  6. BUPROPION SR [Concomitant]
     Active Substance: BUPROPION
  7. ADDERALL [Concomitant]
     Active Substance: AMPHETAMINE ASPARTATE\AMPHETAMINE SULFATE\DEXTROAMPHETAMINE SACCHARATE\DEXTROAMPHETAMINE SULFATE
  8. CRANBERRY PILLS [Concomitant]

REACTIONS (14)
  - Weight increased [None]
  - Fatigue [None]
  - Insomnia [None]
  - Asthenia [None]
  - Feeling abnormal [None]
  - Headache [None]
  - Arthralgia [None]
  - Anxiety [None]
  - Memory impairment [None]
  - Back pain [None]
  - Depression [None]
  - Irritability [None]
  - Acne [None]
  - Visual acuity reduced [None]

NARRATIVE: CASE EVENT DATE: 20161006
